FAERS Safety Report 21996722 (Version 1)
Quarter: 2023Q1

REPORT INFORMATION
  Report Type: Spontaneous
  Country: FR (occurrence: FR)
  Receive Date: 20230215
  Receipt Date: 20230215
  Transmission Date: 20230418
  Serious: Yes (Other)
  Sender: FDA-Public Use
  Company Number: None

PATIENT
  Age: 55 Year
  Sex: Male
  Weight: 88 kg

DRUGS (2)
  1. ARTEMETHER\LUMEFANTRINE [Suspect]
     Active Substance: ARTEMETHER\LUMEFANTRINE
     Indication: Plasmodium falciparum infection
     Dosage: UNK, (24 COMPRIMES EN 6 FOIS SUR 60 HEURES)
     Route: 048
     Dates: start: 20190831, end: 20190903
  2. ARTESUNATE [Suspect]
     Active Substance: ARTESUNATE
     Indication: Plasmodium falciparum infection
     Dosage: 2.4 MG/KG, QD
     Route: 042
     Dates: start: 20190829, end: 20190831

REACTIONS (1)
  - Haemolytic anaemia [Recovered/Resolved]

NARRATIVE: CASE EVENT DATE: 20190831
